FAERS Safety Report 9729807 (Version 1)
Quarter: 2013Q4

REPORT INFORMATION
  Report Type: Spontaneous
  Country: US (occurrence: US)
  Receive Date: 20131204
  Receipt Date: 20131204
  Transmission Date: 20140711
  Serious: No
  Sender: FDA-Public Use
  Company Number: US-GILEAD-2009-0022581

PATIENT
  Age: 76 Year
  Sex: Female

DRUGS (6)
  1. LETAIRIS [Suspect]
     Indication: PULMONARY ARTERIAL HYPERTENSION
     Route: 048
     Dates: start: 20090415
  2. WARFARIN [Concomitant]
  3. ATENOLOL [Concomitant]
  4. SPIRIVA [Concomitant]
  5. ADVAIR [Concomitant]
  6. CALCIUM [Concomitant]

REACTIONS (1)
  - Dry mouth [Not Recovered/Not Resolved]
